FAERS Safety Report 4326623-6 (Version None)
Quarter: 2004Q1

REPORT INFORMATION
  Report Type: 
  Country: None (occurrence: None)
  Receive Date: 20040330
  Receipt Date: 20040319
  Transmission Date: 20041129
  Serious: Yes (Hospitalization)
  Sender: FDA-Public Use
  Company Number: PHRM2004FR01298

PATIENT
  Age: 77 Year
  Sex: Female

DRUGS (4)
  1. LESCOL [Suspect]
     Dosage: 80 MG / DAY
     Route: 048
  2. COTAREG [Suspect]
     Dosage: 160 MG / DAY
     Route: 048
  3. KETEK [Suspect]
     Dosage: 800 MG / DAY
     Route: 047
     Dates: start: 20040224
  4. AMBROXOL [Concomitant]
     Dosage: 45 ML / DAY
     Route: 048
     Dates: start: 20040224

REACTIONS (2)
  - CEREBROVASCULAR ACCIDENT [None]
  - FACIAL PALSY [None]
